FAERS Safety Report 15243610 (Version 1)
Quarter: 2018Q3

REPORT INFORMATION
  Report Type: Spontaneous
  Country: US (occurrence: US)
  Receive Date: 20180712
  Receipt Date: 20180712
  Transmission Date: 20181010
  Serious: Yes (Death)
  Sender: FDA-Public Use
  Company Number: None

PATIENT
  Sex: Female

DRUGS (4)
  1. AMLODIPINE [Concomitant]
     Active Substance: AMLODIPINE BESYLATE
  2. RAMIPRIL 10MG [Concomitant]
     Active Substance: RAMIPRIL
  3. TRIAMTERENE/HCTZ 37.5/25MG [Concomitant]
  4. VOTRIENT [Suspect]
     Active Substance: PAZOPANIB HYDROCHLORIDE
     Indication: SOFT TISSUE SARCOMA
     Dosage: ?          OTHER FREQUENCY:D X 2 WKS, 3 TS D;?
     Route: 048
     Dates: start: 20180608

REACTIONS (1)
  - Death [None]
